FAERS Safety Report 7648939-8 (Version None)
Quarter: 2011Q3

REPORT INFORMATION
  Report Type: 
  Country: None (occurrence: None)
  Receive Date: 20110801
  Receipt Date: 20110729
  Transmission Date: 20111222
  Serious: Yes (Life-Threatening, Hospitalization)
  Sender: FDA-Public Use
  Company Number: AU-B.I. PHARMACEUTICALS,INC./RIDGEFIELD-2011-AU-00531AU

PATIENT
  Sex: Female
  Weight: 70 kg

DRUGS (6)
  1. IMDUR [Concomitant]
     Dosage: 60 MG
  2. NORVASC [Concomitant]
     Dosage: 10 MG
  3. MOBIC [Suspect]
     Indication: SPINAL OSTEOARTHRITIS
     Dosage: 7.5 MG - 15 MG DAILY
     Dates: start: 20080820, end: 20110508
  4. ACTONEL COMBI D [Concomitant]
     Dosage: 35 MG WEEKLY
  5. ZOCOR [Concomitant]
     Dosage: 80 MG
  6. PANTOPRAZOLE [Concomitant]
     Dosage: 80 MG

REACTIONS (2)
  - INFECTIOUS PERITONITIS [None]
  - GASTRIC ULCER PERFORATION [None]
